FAERS Safety Report 7516604-3 (Version None)
Quarter: 2011Q2

REPORT INFORMATION
  Report Type: 
  Country: None (occurrence: None)
  Receive Date: 20110601
  Receipt Date: 20110518
  Transmission Date: 20111010
  Serious: Yes (Death)
  Sender: FDA-Public Use
  Company Number: US-CELGENEUS-163-21880-11052348

PATIENT
  Sex: Female

DRUGS (7)
  1. PRILOSEC [Concomitant]
     Route: 065
  2. REVLIMID [Suspect]
     Indication: MULTIPLE MYELOMA
     Dosage: 10 MILLIGRAM
     Route: 048
     Dates: start: 20110318, end: 20110514
  3. VITAMIN D [Concomitant]
     Route: 065
  4. NAPROXEN (ALEVE) [Concomitant]
     Route: 065
  5. EXCEDRIN (MIGRAINE) [Concomitant]
     Route: 065
  6. AMBIEN [Concomitant]
     Route: 065
  7. FEMARA [Concomitant]
     Route: 065

REACTIONS (1)
  - DEATH [None]
